FAERS Safety Report 6598733-4 (Version None)
Quarter: 2010Q1

REPORT INFORMATION
  Report Type: 
  Country: None (occurrence: None)
  Receive Date: 20100224
  Receipt Date: 20100119
  Transmission Date: 20100710
  Serious: Yes (Other)
  Sender: FDA-Public Use
  Company Number: CA-PFIZER INC-2010018554

PATIENT

DRUGS (2)
  1. CHAMPIX [Suspect]
  2. MOTRIN [Concomitant]
     Dosage: UNK

REACTIONS (4)
  - AGITATION [None]
  - ANGER [None]
  - IRRITABILITY [None]
  - PERSONALITY CHANGE [None]
